FAERS Safety Report 9321127 (Version 1)
Quarter: 2013Q2

REPORT INFORMATION
  Report Type: Spontaneous
  Country: US (occurrence: None)
  Receive Date: 20130528
  Receipt Date: 20130528
  Transmission Date: 20140414
  Serious: Yes (Other)
  Sender: FDA-Public Use
  Company Number: 2012AP001549

PATIENT
  Age: 43 Year
  Sex: Male
  Weight: 53.21 kg

DRUGS (3)
  1. FERRIPROX [Suspect]
     Dosage: 70.5 MG/KG QD PO?
     Route: 048
     Dates: start: 20120518, end: 20120518
  2. CELLCEPT [Concomitant]
  3. MYCOPHENOLATE [Concomitant]

REACTIONS (11)
  - Hypersensitivity [None]
  - Pyrexia [None]
  - Chromaturia [None]
  - Abdominal pain upper [None]
  - Palpitations [None]
  - Eye swelling [None]
  - Pruritus [None]
  - Nasal congestion [None]
  - Ocular hyperaemia [None]
  - Lacrimation increased [None]
  - Oedema mouth [None]
